FAERS Safety Report 19364983 (Version 1)
Quarter: 2021Q2

REPORT INFORMATION
  Report Type: Spontaneous
  Country: AU (occurrence: AU)
  Receive Date: 20210602
  Receipt Date: 20210602
  Transmission Date: 20210717
  Serious: Yes (Other)
  Sender: FDA-Public Use
  Company Number: AU-ABBVIE-21K-008-3931072-00

PATIENT

DRUGS (1)
  1. IBRUTINIB [Suspect]
     Active Substance: IBRUTINIB
     Indication: T-CELL LYMPHOMA
     Route: 048

REACTIONS (3)
  - Haemophagocytic lymphohistiocytosis [Unknown]
  - Off label use [Unknown]
  - Product use in unapproved indication [Unknown]
